FAERS Safety Report 9196833 (Version 2)
Quarter: 2013Q2

REPORT INFORMATION
  Report Type: Spontaneous
  Country: IT (occurrence: IT)
  Receive Date: 20130328
  Receipt Date: 20130506
  Transmission Date: 20140414
  Serious: Yes (Disabling)
  Sender: FDA-Public Use
  Company Number: PHHY2013IT028191

PATIENT
  Sex: Male

DRUGS (8)
  1. ZOMETA [Suspect]
     Indication: PROSTATE CANCER METASTATIC
     Dosage: 4 MG, MONTHLY
     Route: 042
     Dates: start: 20120328, end: 20130109
  2. JEVTANA [Concomitant]
     Indication: PROSTATE CANCER METASTATIC
     Dosage: 20 MG PER SQUARE METRE
     Route: 042
  3. IPSTYL [Concomitant]
     Indication: PROSTATE CANCER METASTATIC
     Dosage: 120 MG, UNK
     Route: 058
     Dates: start: 20120314, end: 20130109
  4. ZOFRAN [Concomitant]
     Indication: PREMEDICATION
     Dosage: 8 MG, UNK
     Route: 042
     Dates: start: 20120612, end: 20121224
  5. TRIMETON [Concomitant]
     Indication: PREMEDICATION
     Dosage: 10 MG, UNK
     Route: 042
  6. RANITIDINA HEXAL [Concomitant]
     Indication: PREMEDICATION
     Dosage: 50 MG, UNK
     Route: 042
     Dates: start: 20120612, end: 20121224
  7. DELTACORTENE [Concomitant]
     Indication: PROSTATE CANCER METASTATIC
     Dosage: 10 MG, UNK
     Route: 048
     Dates: start: 20120612, end: 20121224
  8. TAXOTERE [Concomitant]
     Indication: PROSTATE CANCER METASTATIC
     Dosage: 138 MG, UNK
     Route: 042
     Dates: start: 20120612, end: 20121224

REACTIONS (1)
  - Osteonecrosis of jaw [Recovered/Resolved with Sequelae]
